FAERS Safety Report 7053053-9 (Version None)
Quarter: 2010Q4

REPORT INFORMATION
  Report Type: 
  Country: None (occurrence: None)
  Receive Date: 20101020
  Receipt Date: 20101011
  Transmission Date: 20110411
  Serious: Yes (Other)
  Sender: FDA-Public Use
  Company Number: GB-TEVA-251776ISR

PATIENT
  Age: 37 Year
  Sex: Female

DRUGS (1)
  1. MORPHINE [Suspect]
     Indication: MUSCULOSKELETAL PAIN

REACTIONS (1)
  - HYPOGONADISM [None]
